FAERS Safety Report 6405656-X (Version None)
Quarter: 2009Q4

REPORT INFORMATION
  Report Type: 
  Country: None (occurrence: None)
  Receive Date: 20091019
  Receipt Date: 20091015
  Transmission Date: 20100525
  Serious: Yes (Hospitalization)
  Sender: FDA-Public Use
  Company Number: B0597520A

PATIENT
  Sex: Female
  Weight: 69 kg

DRUGS (4)
  1. LAPATINIB [Suspect]
     Indication: BREAST CANCER
     Dosage: 1250MG PER DAY
     Route: 048
     Dates: start: 20090707
  2. EPIRUBICIN [Suspect]
     Indication: BREAST CANCER
     Dosage: 156MG EVERY 3 WEEKS
     Route: 042
     Dates: start: 20090707
  3. CYCLOPHOSPHAMIDE [Suspect]
     Indication: BREAST CANCER
     Dosage: 1038MG EVERY 3 WEEKS
     Route: 042
     Dates: start: 20090707
  4. DOCETAXEL [Suspect]
     Indication: BREAST CANCER
     Dosage: 173MG EVERY 3 WEEKS
     Route: 042
     Dates: start: 20090929

REACTIONS (3)
  - GENERAL PHYSICAL HEALTH DETERIORATION [None]
  - NEUTROPENIA [None]
  - PYREXIA [None]
